FAERS Safety Report 9696277 (Version 1)
Quarter: 2013Q4

REPORT INFORMATION
  Report Type: Spontaneous
  Country: JP (occurrence: None)
  Receive Date: 20131115
  Receipt Date: 20131115
  Transmission Date: 20140711
  Serious: Yes (Hospitalization)
  Sender: FDA-Public Use
  Company Number: SYM-2013-12486

PATIENT
  Age: 45 Year
  Sex: Female

DRUGS (4)
  1. FLUOROURACIL (FLUOROURACIL) (FLUOROURACIL) [Suspect]
     Indication: BREAST CANCER
     Dosage: 500 MG/M2, EVERY THREE WEEKS, INTRAVENOUS
     Route: 042
  2. EPIRUBICIN (EPIRUBICIN) (EPIRUBICIN) [Suspect]
     Indication: BREAST CANCER
     Dosage: 100 MG/M2, EVERY THREE WEEKS, INTRAVENOUS
     Route: 042
  3. CYCLOPHOSPHAMIDE (CYCLOPHOSPHAMIDE) (CYCLOPHOSPHAMIDE) [Suspect]
     Dosage: 500 MG/M2, EVERY THREE WEEKS, INTRAVENOUS
     Route: 042
  4. PACLITAXEL [Suspect]
     Dosage: 80 MG/M2, WEEKLY, INTRAVENOUS

REACTIONS (1)
  - Interstitial lung disease [None]
